FAERS Safety Report 17860021 (Version 1)
Quarter: 2020Q2

REPORT INFORMATION
  Report Type: Spontaneous
  Country: US (occurrence: US)
  Receive Date: 20200604
  Receipt Date: 20200604
  Transmission Date: 20200714
  Serious: Yes (Other)
  Sender: FDA-Public Use
  Company Number: None

PATIENT
  Age: 71 Year
  Sex: Male
  Weight: 87 kg

DRUGS (4)
  1. ZITHROMAX [Concomitant]
     Active Substance: AZITHROMYCIN DIHYDRATE
     Dates: start: 20200529, end: 20200530
  2. REMDESIVIR. [Suspect]
     Active Substance: REMDESIVIR
     Indication: COVID-19
     Route: 042
     Dates: start: 20200529, end: 20200603
  3. ACTEMRA [Concomitant]
     Active Substance: TOCILIZUMAB
     Dates: start: 20200601, end: 20200601
  4. KALETRA [Concomitant]
     Active Substance: LOPINAVIR\RITONAVIR
     Dates: start: 20200529, end: 20200603

REACTIONS (3)
  - Blood bilirubin increased [None]
  - Aspartate aminotransferase increased [None]
  - Alanine aminotransferase increased [None]

NARRATIVE: CASE EVENT DATE: 20200602
